FAERS Safety Report 8622763-1 (Version None)
Quarter: 2012Q3

REPORT INFORMATION
  Report Type: 
  Country: None (occurrence: None)
  Receive Date: 20120814
  Receipt Date: 20120803
  Transmission Date: 20120928
  Serious: Yes (Other)
  Sender: FDA-Public Use
  Company Number: DSA_58891_2012

PATIENT

DRUGS (3)
  1. LEUCOVORIN CALCIUM [Suspect]
     Indication: COLORECTAL CANCER
     Dosage: (DF; EVERY CYCLE INTRAVENOUS (NOT OTHERWISE SPECIFIED)
  2. FLUOROURACIL [Suspect]
     Indication: COLORECTAL CANCER
     Dosage: (DF; EVERYCYCLE INTRAVENOUS (NOT OTHERWISE SPECIFIED)), (DF; EVERY CYCLE INTRAVENOUS (NOT OTHERWISE
     Route: 042
  3. OXALIPLATIN [Suspect]
     Indication: COLORECTAL CANCER
     Dosage: (DF; EVERY CYCLE INTRAVENOUS (NOT OTHERWISE SPECIFIED)
     Route: 042

REACTIONS (2)
  - HAEMATOTOXICITY [None]
  - NEUTROPENIA [None]
